FAERS Safety Report 6503873-1 (Version None)
Quarter: 2009Q4

REPORT INFORMATION
  Report Type: 
  Country: None (occurrence: None)
  Receive Date: 20091217
  Receipt Date: 20091209
  Transmission Date: 20100525
  Serious: Yes (Disabling)
  Sender: FDA-Public Use
  Company Number: B0613277A

PATIENT
  Age: 64 Year
  Sex: Female
  Weight: 44.45 kg

DRUGS (5)
  1. PANDEMRIX H1N1 [Suspect]
     Indication: PROPHYLAXIS
     Dosage: 1INJ SINGLE DOSE
     Route: 030
     Dates: start: 20091204, end: 20091204
  2. VENTOLIN [Suspect]
     Route: 055
     Dates: start: 20061018
  3. SYMBICORT [Suspect]
     Route: 055
     Dates: start: 20091117
  4. IPRATROPIUM BROMIDE [Suspect]
     Route: 055
     Dates: start: 20090925
  5. INFLUENZA VIRUS VACCINE [Concomitant]

REACTIONS (3)
  - DYSPNOEA [None]
  - HEADACHE [None]
  - PAIN IN EXTREMITY [None]
